FAERS Safety Report 20758019 (Version 1)
Quarter: 2022Q2

REPORT INFORMATION
  Report Type: Spontaneous
  Country: US (occurrence: None)
  Receive Date: 20220427
  Receipt Date: 20220427
  Transmission Date: 20220721
  Serious: No
  Sender: FDA-Public Use
  Company Number: None

PATIENT
  Age: 78 Year
  Sex: Female

DRUGS (1)
  1. HUMIRA [Suspect]
     Active Substance: ADALIMUMAB
     Indication: Uveitis
     Dosage: OTHER QUANTITY : 80MG;40MG;?OTHER FREQUENCY : DAY1;DAY8;?8OMG;, DAY 1MG  ;40 MG  DAY 8 SUBCUTANEOUS
     Route: 058
     Dates: start: 20220405

REACTIONS (1)
  - Rash [None]

NARRATIVE: CASE EVENT DATE: 20220427
